FAERS Safety Report 5207715-6 (Version None)
Quarter: 2006Q4

REPORT INFORMATION
  Report Type: 
  Country: None (occurrence: None)
  Receive Date: 20061030
  Receipt Date: 20060731
  Transmission Date: 20070319
  Serious: No
  Sender: FDA-Public Use
  Company Number: 2006CT000700

PATIENT
  Age: 50 Year
  Sex: Female
  Weight: 90.7 kg

DRUGS (14)
  1. VENTAVIS [Suspect]
     Indication: PULMONARY HYPERTENSION
     Dosage: 5 UG; 3XD; INH; SEE IMAGE
     Route: 055
     Dates: start: 20060310, end: 20060619
  2. VENTAVIS [Suspect]
     Indication: PULMONARY HYPERTENSION
     Dosage: 5 UG; 3XD; INH; SEE IMAGE
     Route: 055
     Dates: start: 20060627, end: 20060704
  3. CARDIAZEM [Concomitant]
  4. PRILOSEC [Concomitant]
  5. LASIX [Concomitant]
  6. ALLOPURINOL SODIUM [Concomitant]
  7. ALBUTEROL [Concomitant]
  8. ALLEGRA [Concomitant]
  9. VISTARIL [Concomitant]
  10. LEVOTHYROXINE SODIUM [Concomitant]
  11. POTASSIUM ACETATE [Concomitant]
  12. CLINDAMYCIN [Concomitant]
  13. FLONASE [Concomitant]
  14. FLOVENT [Concomitant]

REACTIONS (2)
  - DYSPEPSIA [None]
  - NAUSEA [None]
